FAERS Safety Report 6000287-8 (Version None)
Quarter: 2008Q4

REPORT INFORMATION
  Report Type: 
  Country: None (occurrence: None)
  Receive Date: 20081215
  Receipt Date: 20081209
  Transmission Date: 20090506
  Serious: Yes (Other)
  Sender: FDA-Public Use
  Company Number: US-ELI_LILLY_AND_COMPANY-US200812003643

PATIENT
  Sex: Female

DRUGS (3)
  1. HUMALOG [Suspect]
     Dosage: UNK, UNK
  2. HUMULIN N [Suspect]
  3. BYETTA [Concomitant]

REACTIONS (6)
  - COUGH [None]
  - DIZZINESS [None]
  - FEAR [None]
  - NASOPHARYNGITIS [None]
  - RASH [None]
  - STEVENS-JOHNSON SYNDROME [None]
